FAERS Safety Report 10112242 (Version 1)
Quarter: 2014Q2

REPORT INFORMATION
  Report Type: Spontaneous
  Country: IN (occurrence: IN)
  Receive Date: 20140425
  Receipt Date: 20140425
  Transmission Date: 20141212
  Serious: Yes (Other)
  Sender: FDA-Public Use
  Company Number: PHHY2014IN048296

PATIENT
  Age: 75 Year
  Sex: Male

DRUGS (5)
  1. HYDROCORTISONE [Suspect]
     Indication: ALLERGY PROPHYLAXIS
     Dosage: 100 MG, UNK
     Route: 042
  2. ASPIRIN [Concomitant]
     Dosage: 150 MG, UNK
  3. CLOPIDOGREL [Concomitant]
     Dosage: 75 MG, UNK
  4. ATORVASTATIN [Concomitant]
     Dosage: 80 MG, UNK
  5. ENOXAPARIN [Concomitant]
     Dosage: 40 MG, UNK

REACTIONS (4)
  - Anaphylactic reaction [Recovering/Resolving]
  - Pruritus generalised [Recovering/Resolving]
  - Hypotension [Recovering/Resolving]
  - Lip swelling [Recovering/Resolving]
